FAERS Safety Report 8170831-3 (Version None)
Quarter: 2012Q1

REPORT INFORMATION
  Report Type: 
  Country: None (occurrence: None)
  Receive Date: 20120104
  Receipt Date: 20111207
  Transmission Date: 20120608
  Serious: No
  Sender: FDA-Public Use
  Company Number: 2011HGS-002934

PATIENT
  Age: 29 Year
  Sex: Female
  Weight: 102.0593 kg

DRUGS (4)
  1. PREDNISONE [Concomitant]
  2. BENLYSTA [Suspect]
     Indication: SYSTEMIC LUPUS ERYTHEMATOSUS
     Dosage: 10 MG/KG, 1 IN 28 D, INTRAVENOUS DRIP
     Route: 041
     Dates: start: 20111101
  3. IMURAN [Concomitant]
  4. PLAQUENIL (HYDROXYCHLOROQUINE SULFATE)(HYDROXYCHLOROQUINE SULFATE) [Concomitant]

REACTIONS (5)
  - SYSTEMIC LUPUS ERYTHEMATOSUS RASH [None]
  - NAUSEA [None]
  - PAIN IN EXTREMITY [None]
  - COLD SWEAT [None]
  - HYPERHIDROSIS [None]
